FAERS Safety Report 19436479 (Version 1)
Quarter: 2021Q2

REPORT INFORMATION
  Report Type: Report from Study
  Country: US (occurrence: US)
  Receive Date: 20210618
  Receipt Date: 20210618
  Transmission Date: 20210717
  Serious: Yes (Other)
  Sender: FDA-Public Use
  Company Number: US-JNJFOC-20210630853

PATIENT
  Age: 40 Year
  Sex: Male

DRUGS (1)
  1. RIVAROXABAN [Suspect]
     Active Substance: RIVAROXABAN
     Indication: BLOOD DISORDER
     Route: 048
     Dates: start: 20210201

REACTIONS (2)
  - Stent placement [Unknown]
  - Peripheral artery angioplasty [Unknown]

NARRATIVE: CASE EVENT DATE: 2021
